FAERS Safety Report 7125930-1 (Version None)
Quarter: 2010Q4

REPORT INFORMATION
  Report Type: 
  Country: None (occurrence: None)
  Receive Date: 20101129
  Receipt Date: 20101117
  Transmission Date: 20110411
  Serious: Yes (Hospitalization)
  Sender: FDA-Public Use
  Company Number: CA-ROCHE-742381

PATIENT
  Age: 75 Year
  Sex: Female

DRUGS (8)
  1. TAMIFLU [Suspect]
     Route: 048
  2. ACTOS [Concomitant]
     Route: 048
  3. ALLOPURINOL [Concomitant]
     Route: 048
  4. CELEXA [Concomitant]
     Route: 048
  5. CILAZAPRIL [Concomitant]
     Route: 048
  6. GLYBURIDE [Concomitant]
     Route: 048
  7. LIPITOR [Concomitant]
     Route: 048
  8. METFORMIN [Concomitant]

REACTIONS (7)
  - BLOOD SODIUM ABNORMAL [None]
  - EYE SWELLING [None]
  - LIP SWELLING [None]
  - OEDEMA PERIPHERAL [None]
  - PRURITUS [None]
  - RASH [None]
  - SWELLING FACE [None]
